FAERS Safety Report 25968918 (Version 1)
Quarter: 2025Q4

REPORT INFORMATION
  Report Type: Spontaneous
  Country: US (occurrence: None)
  Receive Date: 20251028
  Receipt Date: 20251028
  Transmission Date: 20260118
  Serious: Yes (Hospitalization)
  Sender: FDA-CTU
  Company Number: None

PATIENT
  Age: 51 Year
  Sex: Male
  Weight: 125.6 kg

DRUGS (9)
  1. CYCLOPHOSPHAMIDE [Suspect]
     Active Substance: CYCLOPHOSPHAMIDE
     Dates: end: 20251010
  2. CYTARABINE [Suspect]
     Active Substance: CYTARABINE
     Dosage: OTHER FREQUENCY : CYTARABINE ? IT TOTAL DOSE: 210 CYTARABINE IV TOTAL DOSE: 30,000 MG START DATE 9/18/2025 END DATE: 9;?
     Dates: end: 20250919
  3. SPRYCEL [Suspect]
     Active Substance: DASATINIB
     Dates: end: 20251020
  4. DEXAMETHASONE [Suspect]
     Active Substance: DEXAMETHASONE
     Dates: end: 20251010
  5. DOXORUBICIN HYDROCHLORIDE [Suspect]
     Active Substance: DOXORUBICIN HYDROCHLORIDE
     Dates: end: 20251010
  6. MESNA [Suspect]
     Active Substance: MESNA
     Dates: end: 20251009
  7. METHOTREXATE [Suspect]
     Active Substance: METHOTREXATE
     Dosage: OTHER FREQUENCY : METHOTREXATE IV TOTAL DOSE: 2500MG METHOTEXATE IT TOTAL DOSE: 37.5 START DATE 9/4/2025 EWND DATE 10/;?
     Dates: end: 20250916
  8. PONATINIB [Suspect]
     Active Substance: PONATINIB
     Dates: end: 20250809
  9. VINCRISTINE SULFATE [Suspect]
     Active Substance: VINCRISTINE SULFATE
     Dates: end: 20251017

REACTIONS (8)
  - Nausea [None]
  - Vomiting [None]
  - Tachycardia [None]
  - Device related sepsis [None]
  - Immunodeficiency [None]
  - Hypotension [None]
  - Catheter site erythema [None]
  - Catheter site discharge [None]

NARRATIVE: CASE EVENT DATE: 20251020
